FAERS Safety Report 5725189-3 (Version None)
Quarter: 2008Q2

REPORT INFORMATION
  Report Type: 
  Country: None (occurrence: None)
  Receive Date: 20080501
  Receipt Date: 20080428
  Transmission Date: 20081010
  Serious: Yes (Other)
  Sender: FDA-Public Use
  Company Number: A0725085A

PATIENT
  Age: 60 Year
  Sex: Female

DRUGS (8)
  1. ADVAIR HFA [Suspect]
     Indication: ASTHMA
     Dosage: 1PUFF TWICE PER DAY
     Route: 055
     Dates: start: 20040801
  2. VYTORIN [Concomitant]
  3. LISINOPRIL [Concomitant]
  4. SYNTHROID [Concomitant]
  5. RHINOCORT [Concomitant]
  6. NYSTATIN [Concomitant]
  7. STEROID [Concomitant]
  8. AZMACORT [Concomitant]

REACTIONS (3)
  - BLISTER [None]
  - DYSPHONIA [None]
  - HYPERKERATOSIS [None]
